FAERS Safety Report 8719787 (Version 3)
Quarter: 2012Q4

REPORT INFORMATION
  Report Type: 
  Country: JP (occurrence: JP)
  Receive Date: 20120813
  Receipt Date: 20121002
  Transmission Date: 20130627
  Serious: Yes (Death, Other)
  Sender: FDA-Public Use
  Company Number: PHHY2012JP068713

PATIENT
  Age: 93 Year
  Sex: Female
  Weight: 38 kg

DRUGS (3)
  1. ZOMETA [Suspect]
     Indication: METASTASES TO BONE
     Dosage: 3 mg, UNK
     Route: 041
     Dates: start: 20111221, end: 20111221
  2. PICIBANIL [Suspect]
     Indication: PLEURAL ADHESION
     Dosage: UNK UKN, UNK
     Dates: start: 20111219, end: 20111219
  3. IRESSA [Concomitant]

REACTIONS (5)
  - Liver disorder [Recovered/Resolved]
  - Liver function test abnormal [Recovered/Resolved]
  - Malaise [Unknown]
  - Blood potassium increased [Unknown]
  - Lung neoplasm malignant [Fatal]
